FAERS Safety Report 4509501-9 (Version None)
Quarter: 2004Q4

REPORT INFORMATION
  Report Type: 
  Country: None (occurrence: None)
  Receive Date: 20041119
  Receipt Date: 20041101
  Transmission Date: 20050328
  Serious: Yes (Hospitalization, Other)
  Sender: FDA-Public Use
  Company Number: USA040774015

PATIENT
  Age: 84 Year
  Sex: Female
  Weight: 50 kg

DRUGS (8)
  1. FORTEO [Suspect]
     Indication: OSTEOPOROSIS
     Dosage: 20 UG DAY
     Dates: start: 20040104
  2. NEURONTIN (GABAPENTIN PFIZER) [Concomitant]
  3. NORTRIPTYLINE HCL [Concomitant]
  4. PEPCID 9FAMOTIDINE) [Concomitant]
  5. INDEAL (PROPRANOLOL HYDROCHLORIDE) [Concomitant]
  6. AMBIEN [Concomitant]
  7. DONNATAL [Concomitant]
  8. CALCIUM/MAGNESIUM/ZINC/VITAMIN D [Concomitant]

REACTIONS (17)
  - AORTIC VALVE DISEASE [None]
  - BLOOD PRESSURE DIASTOLIC DECREASED [None]
  - BODY HEIGHT DECREASED [None]
  - DYSPHAGIA [None]
  - ERUCTATION [None]
  - FALL [None]
  - FEMUR FRACTURE [None]
  - HAEMOGLOBIN DECREASED [None]
  - HEADACHE [None]
  - HIP FRACTURE [None]
  - INCREASED UPPER AIRWAY SECRETION [None]
  - INJECTION SITE PAIN [None]
  - MUSCLE CRAMP [None]
  - OESOPHAGITIS [None]
  - PAIN [None]
  - PHARMACEUTICAL PRODUCT COMPLAINT [None]
  - PULSE PRESSURE INCREASED [None]
